FAERS Safety Report 25063453 (Version 1)
Quarter: 2025Q1

REPORT INFORMATION
  Report Type: Spontaneous
  Country: US (occurrence: None)
  Receive Date: 20250310
  Receipt Date: 20250310
  Transmission Date: 20250408
  Serious: Yes (Hospitalization)
  Sender: FDA-CTU
  Company Number: None

PATIENT
  Age: 78 Year
  Sex: Male

DRUGS (1)
  1. ADAGRASIB [Suspect]
     Active Substance: ADAGRASIB
     Indication: Lung neoplasm malignant
     Dosage: 600.00 MG TWICE A DAY ORAL ?
     Route: 048
     Dates: start: 20241002, end: 20241121

REACTIONS (4)
  - Confusional state [None]
  - Mental status changes [None]
  - Pneumonia aspiration [None]
  - Delirium [None]

NARRATIVE: CASE EVENT DATE: 20241015
